FAERS Safety Report 6841082-7 (Version None)
Quarter: 2010Q3

REPORT INFORMATION
  Report Type: 
  Country: None (occurrence: None)
  Receive Date: 20100714
  Receipt Date: 20070627
  Transmission Date: 20110219
  Serious: No
  Sender: FDA-Public Use
  Company Number: US-PFIZER INC-2007053975

PATIENT
  Age: 33 Year
  Sex: Female

DRUGS (2)
  1. CHANTIX [Suspect]
  2. ANTIDEPRESSANTS [Concomitant]

REACTIONS (2)
  - EATING DISORDER [None]
  - VULVOVAGINAL DRYNESS [None]
